FAERS Safety Report 23843685 (Version 1)
Quarter: 2024Q2

REPORT INFORMATION
  Report Type: Spontaneous
  Country: GB (occurrence: GB)
  Receive Date: 20240510
  Receipt Date: 20240510
  Transmission Date: 20240716
  Serious: Yes (Other)
  Sender: FDA-Public Use
  Company Number: GB-JNJFOC-20240526035

PATIENT
  Age: 64 Year
  Sex: Female

DRUGS (1)
  1. SIMPONI [Suspect]
     Active Substance: GOLIMUMAB
     Indication: Rheumatic disorder
     Dosage: 50 MG/0.5 ML
     Route: 058

REACTIONS (6)
  - Limb operation [Unknown]
  - Pain [Unknown]
  - Bone disorder [Unknown]
  - Insomnia [Unknown]
  - Abnormal loss of weight [Unknown]
  - Off label use [Unknown]
